FAERS Safety Report 5796409-4 (Version None)
Quarter: 2008Q2

REPORT INFORMATION
  Report Type: 
  Country: None (occurrence: None)
  Receive Date: 20080630
  Receipt Date: 20080630
  Transmission Date: 20081010
  Serious: Yes (Life-Threatening, Hospitalization)
  Sender: FDA-Public Use
  Company Number: None

PATIENT
  Sex: Male
  Weight: 115.2136 kg

DRUGS (3)
  1. FLUOROURACIL [Suspect]
     Indication: INFECTION
  2. SEPTRA [Suspect]
  3. BACKSTRA [Concomitant]

REACTIONS (6)
  - BLISTER [None]
  - BODY TEMPERATURE INCREASED [None]
  - BURN OF INTERNAL ORGANS [None]
  - SCAB [None]
  - SKIN DISORDER [None]
  - THERMAL BURN [None]
